FAERS Safety Report 5589971-8 (Version None)
Quarter: 2007Q4

REPORT INFORMATION
  Report Type: 
  Country: None (occurrence: None)
  Receive Date: 20071212
  Receipt Date: 20070716
  Transmission Date: 20080405
  Serious: Yes (Death)
  Sender: FDA-Public Use
  Company Number: USA-2007-0028306

PATIENT
  Age: 38 Year
  Sex: Female
  Weight: 61.2 kg

DRUGS (3)
  1. OXYCONTIN [Suspect]
     Dosage: ORAL
     Route: 048
  2. MIRTAZAPINE [Suspect]
  3. CANNABINOIDS [Suspect]

REACTIONS (1)
  - ACCIDENTAL OVERDOSE [None]
